FAERS Safety Report 24704801 (Version 1)
Quarter: 2024Q4

REPORT INFORMATION
  Report Type: Spontaneous
  Country: US (occurrence: US)
  Receive Date: 20241206
  Receipt Date: 20241206
  Transmission Date: 20250114
  Serious: No
  Sender: STALLERGENES
  Company Number: US-STALCOR-2024-AER-02191

PATIENT
  Age: 17 Year
  Sex: Male

DRUGS (2)
  1. PALFORZIA [Suspect]
     Active Substance: PEANUT
     Indication: Food allergy
     Dosage: STARTING DOSE OF LEVEL 8 AT DOCTOR^S OFFICE- 160-MG
     Route: 048
     Dates: start: 20240910
  2. PALFORZIA [Suspect]
     Active Substance: PEANUT
     Dosage: LAST DOSE PRIOR TO EVENT
     Route: 048
     Dates: start: 20240914

REACTIONS (2)
  - Vomiting [Recovered/Resolved]
  - Product dose omission issue [Recovered/Resolved]

NARRATIVE: CASE EVENT DATE: 20240914
